FAERS Safety Report 16362277 (Version 2)
Quarter: 2019Q3

REPORT INFORMATION
  Report Type: Spontaneous
  Country: DE (occurrence: DE)
  Receive Date: 20190528
  Receipt Date: 20190726
  Transmission Date: 20191004
  Serious: Yes (Hospitalization, Disabling)
  Sender: FDA-Public Use
  Company Number: DE-TAKEDA-2019TEU006153

PATIENT
  Age: 60 Year
  Sex: Male

DRUGS (5)
  1. LEFLUNOMIDE. [Concomitant]
     Active Substance: LEFLUNOMIDE
     Indication: PSORIATIC ARTHROPATHY
     Dosage: 20 MILLIGRAM, QD
     Dates: start: 2017
  2. TISSEEL                            /06417701/ [Suspect]
     Active Substance: FIBRINOGEN HUMAN\THROMBIN HUMAN
     Dosage: 2 MILLIGRAM
     Route: 065
     Dates: start: 20190412
  3. TACHOSIL [Suspect]
     Active Substance: FIBRINOGEN HUMAN\THROMBIN HUMAN
     Indication: CEREBROSPINAL FLUID LEAKAGE
     Dosage: 3.0 X 2.5, CM
     Route: 065
     Dates: start: 20190402, end: 20190402
  4. TACHOSIL [Suspect]
     Active Substance: FIBRINOGEN HUMAN\THROMBIN HUMAN
     Dosage: 3.0 X 2.5, CM
     Route: 065
     Dates: start: 20190412, end: 20190412
  5. TISSEEL                            /06417701/ [Suspect]
     Active Substance: FIBRINOGEN HUMAN\THROMBIN HUMAN
     Indication: CEREBROSPINAL FLUID LEAKAGE
     Dosage: 2 MILLIGRAM
     Route: 065
     Dates: start: 20190402, end: 20190402

REACTIONS (2)
  - Oedema [Unknown]
  - Cauda equina syndrome [Not Recovered/Not Resolved]

NARRATIVE: CASE EVENT DATE: 20190402
